FAERS Safety Report 4946994-7 (Version None)
Quarter: 2006Q1

REPORT INFORMATION
  Report Type: 
  Country: None (occurrence: None)
  Receive Date: 20060317
  Receipt Date: 20050623
  Transmission Date: 20060701
  Serious: Yes (Hospitalization, Disabling)
  Sender: FDA-Public Use
  Company Number: US-ROCHE-408705

PATIENT
  Age: 17 Year
  Sex: Male
  Weight: 165 kg

DRUGS (6)
  1. ACCUTANE [Suspect]
     Route: 048
     Dates: start: 19870202, end: 19870402
  2. ACCUTANE [Suspect]
     Route: 048
     Dates: start: 19871230, end: 19880127
  3. ACCUTANE [Suspect]
     Dosage: BID ALTERNATING WITH QD
     Route: 048
     Dates: start: 19880127, end: 19880601
  4. ACCUTANE [Suspect]
     Route: 048
     Dates: start: 19930102, end: 19930401
  5. ACCUTANE [Suspect]
     Route: 048
     Dates: start: 19950501, end: 19950502
  6. ACCUTANE [Suspect]
     Route: 048
     Dates: start: 19950502, end: 19950602

REACTIONS (24)
  - ABDOMINAL PAIN [None]
  - AFFECTIVE DISORDER [None]
  - ANXIETY [None]
  - BIPOLAR DISORDER [None]
  - CARDIAC DISORDER [None]
  - CROHN'S DISEASE [None]
  - DEPRESSION [None]
  - ERECTILE DYSFUNCTION [None]
  - GASTROINTESTINAL DISORDER [None]
  - INFLAMMATORY BOWEL DISEASE [None]
  - INFLUENZA LIKE ILLNESS [None]
  - INTESTINAL HAEMORRHAGE [None]
  - LIP DRY [None]
  - MENTAL DISORDER [None]
  - MYALGIA [None]
  - NASAL DISCOMFORT [None]
  - NAUSEA [None]
  - NIGHT BLINDNESS [None]
  - PSYCHOTIC DISORDER [None]
  - RECTAL HAEMORRHAGE [None]
  - SCHIZOPHRENIA, PARANOID TYPE [None]
  - SUICIDAL IDEATION [None]
  - VISUAL DISTURBANCE [None]
  - VOMITING [None]
